FAERS Safety Report 4949701-7 (Version None)
Quarter: 2006Q1

REPORT INFORMATION
  Report Type: 
  Country: None (occurrence: None)
  Receive Date: 20060315
  Receipt Date: 20020730
  Transmission Date: 20060701
  Serious: Yes (Other)
  Sender: FDA-Public Use
  Company Number: 2005SS000623

PATIENT
  Age: 45 Year
  Sex: Female

DRUGS (4)
  1. MYOBLOC [Suspect]
     Indication: MUSCLE SPASTICITY
     Dosage: 10000 UNITS; IM
     Route: 030
     Dates: start: 20020703, end: 20020703
  2. MARCAINE [Concomitant]
  3. ULTRAM [Concomitant]
  4. DEPO-MEDROL [Concomitant]

REACTIONS (5)
  - CHOKING [None]
  - DRY MOUTH [None]
  - GASTROINTESTINAL MOTILITY DISORDER [None]
  - INFREQUENT BOWEL MOVEMENTS [None]
  - VISION BLURRED [None]
